FAERS Safety Report 13609458 (Version 4)
Quarter: 2018Q1

REPORT INFORMATION
  Report Type: Report from Study
  Country: US (occurrence: US)
  Receive Date: 20170602
  Receipt Date: 20180313
  Transmission Date: 20180508
  Serious: Yes (Hospitalization, Other)
  Sender: FDA-Public Use
  Company Number: US-MYLANLABS-2017M1032053

PATIENT
  Age: 7 Year
  Sex: Male
  Weight: 28 kg

DRUGS (12)
  1. VINCRISTINE [Suspect]
     Active Substance: VINCRISTINE
     Indication: ACUTE LYMPHOCYTIC LEUKAEMIA
     Dosage: 1.5 MG, QD (DAYS 15,22,43 AND 50)
     Route: 042
     Dates: start: 20170504
  2. METHOTREXATE. [Suspect]
     Active Substance: METHOTREXATE
     Dosage: 12 MG (5000 MG/M2), ON DAY 1, 15, 29 AND 43
     Route: 037
     Dates: start: 20170622
  3. METHOTREXATE. [Suspect]
     Active Substance: METHOTREXATE
     Dosage: HIGH DOSES
  4. MERCAPTOPURINE. [Suspect]
     Active Substance: MERCAPTOPURINE
     Indication: ACUTE LYMPHOCYTIC LEUKAEMIA
     Dosage: 60 MG/M2, QD, (75 MG X 4 NIGHTS/WEEK), (50MG X 3 NIGHTS/ WEEK) DAYS 1-14 AND 29-32
     Dates: start: 20170420, end: 20170503
  5. PEGASPARGASE [Suspect]
     Active Substance: PEGASPARGASE
     Indication: ACUTE LYMPHOCYTIC LEUKAEMIA
     Dosage: 2450 IU, (DAYS 15 AND 43)
     Route: 042
     Dates: start: 20170504, end: 20170504
  6. CYCLOPHOSPHAMIDE. [Suspect]
     Active Substance: CYCLOPHOSPHAMIDE
     Indication: ACUTE LYMPHOCYTIC LEUKAEMIA
     Dosage: 1100 MG, QD, DAY 1 , 980 MG ON DAY 29
     Route: 042
     Dates: start: 20170420, end: 20170518
  7. MERCAPTOPURINE. [Suspect]
     Active Substance: MERCAPTOPURINE
     Dosage: 25 MG/M2, QD
     Dates: start: 20170622
  8. METHOTREXATE. [Suspect]
     Active Substance: METHOTREXATE
     Indication: ACUTE LYMPHOCYTIC LEUKAEMIA
     Dosage: 12 MG, QD (1,8,15 AND 22)
     Route: 037
     Dates: start: 20170420, end: 20170518
  9. INVESTIGATIONAL DRUG [Suspect]
     Active Substance: INVESTIGATIONAL PRODUCT
     Indication: ACUTE LYMPHOCYTIC LEUKAEMIA
     Dosage: 10 MG, BID
     Route: 048
     Dates: start: 20170420
  10. INVESTIGATIONAL DRUG [Suspect]
     Active Substance: INVESTIGATIONAL PRODUCT
     Dosage: 40 MG, BID
     Route: 048
     Dates: start: 20170622
  11. CYTARABINE. [Suspect]
     Active Substance: CYTARABINE
     Indication: ACUTE LYMPHOCYTIC LEUKAEMIA
     Dosage: 79 MG, QD (1-4, 8-11 DAYS), 60 MG/M2, QD (75 MG X4 NIGHTS/WK, 50 MG X3 NIGHTS/WK) DAYS 1-14, 29-42
     Route: 058
     Dates: start: 20170420, end: 20170430
  12. VINCRISTINE [Suspect]
     Active Substance: VINCRISTINE
     Dosage: 1.5 MG/M2, ON DAYS 1, 15, 29 AND 43
     Dates: start: 20170622

REACTIONS (6)
  - Anaemia [Recovered/Resolved]
  - Headache [Unknown]
  - Spinal pain [Unknown]
  - Febrile neutropenia [Recovered/Resolved]
  - Enterocolitis infectious [Recovered/Resolved]
  - Pyrexia [Recovered/Resolved]

NARRATIVE: CASE EVENT DATE: 20170504
